FAERS Safety Report 7333427-9 (Version None)
Quarter: 2011Q1

REPORT INFORMATION
  Report Type: 
  Country: None (occurrence: None)
  Receive Date: 20110304
  Receipt Date: 20110221
  Transmission Date: 20110831
  Serious: Yes (Other)
  Sender: FDA-Public Use
  Company Number: PHHY2011JP14906

PATIENT

DRUGS (1)
  1. NEORAL [Suspect]
     Indication: PSORIASIS
     Route: 048

REACTIONS (3)
  - RENAL IMPAIRMENT [None]
  - HYPERCALCAEMIA [None]
  - BLOOD CREATININE INCREASED [None]
